FAERS Safety Report 9970236 (Version 1)
Quarter: 2014Q1

REPORT INFORMATION
  Report Type: Spontaneous
  Country: US (occurrence: US)
  Receive Date: 20140306
  Receipt Date: 20140306
  Transmission Date: 20141002
  Serious: No
  Sender: FDA-Public Use
  Company Number: US-BAYER-2014-034279

PATIENT
  Age: 73 Year
  Sex: Female
  Weight: 82 kg

DRUGS (6)
  1. ALEVE TABLET [Suspect]
     Dosage: 2 DF, BID
     Route: 048
  2. QUINAPRIL [Concomitant]
     Dosage: UNK
  3. AMLODIPINE [Concomitant]
     Dosage: UNK
  4. CLONIDINE [Concomitant]
     Dosage: UNK UNK, PRN
     Route: 061
  5. CLONIDINE [Concomitant]
     Dosage: UNK
     Route: 048
  6. ZETIA [Concomitant]
     Dosage: UNK

REACTIONS (1)
  - Extra dose administered [None]
